FAERS Safety Report 14344114 (Version 3)
Quarter: 2018Q2

REPORT INFORMATION
  Report Type: Report from Study
  Country: None (occurrence: DE)
  Receive Date: 20180102
  Receipt Date: 20180419
  Transmission Date: 20180711
  Serious: Yes (Hospitalization)
  Sender: FDA-Public Use
  Company Number: DE-BAUSCH-BL-2017-035506

PATIENT
  Age: 64 Year
  Sex: Male
  Weight: 66 kg

DRUGS (21)
  1. AMPHO MORONAL [Concomitant]
     Active Substance: AMPHOTERICIN B
     Indication: PROPHYLAXIS
     Route: 048
     Dates: start: 20171116
  2. MIFLONIDE [Concomitant]
     Active Substance: BUDESONIDE
     Indication: CHRONIC OBSTRUCTIVE PULMONARY DISEASE
     Route: 055
     Dates: start: 20171019
  3. ASA RATIOPHARM [Concomitant]
     Indication: TACHYCARDIA
     Route: 048
     Dates: start: 20170320
  4. PRIVIGEN [Concomitant]
     Active Substance: HUMAN IMMUNOGLOBULIN G
     Indication: PROPHYLAXIS
     Dosage: MONTHLY
     Route: 041
     Dates: start: 20171116
  5. DEXAMETHASONE. [Suspect]
     Active Substance: DEXAMETHASONE
     Route: 065
  6. PANTOPRAZOL RATIOPHARM [Concomitant]
     Active Substance: PANTOPRAZOLE SODIUM
     Indication: PROPHYLAXIS
     Route: 048
     Dates: start: 20171019
  7. SALBUTAMOL-RATIOPHARM N [Concomitant]
     Indication: CHRONIC OBSTRUCTIVE PULMONARY DISEASE
     Route: 045
  8. IRENAT [Concomitant]
     Active Substance: SODIUM PERCHLORATE
     Indication: PROPHYLAXIS
     Route: 048
     Dates: start: 20171019, end: 20171116
  9. DEXAMETHASONE. [Suspect]
     Active Substance: DEXAMETHASONE
     Dosage: WEEKLY;?5.7143 MILLIGRAM
     Route: 065
  10. SIMVA HENNIG [Concomitant]
     Indication: MITRAL VALVE STENOSIS
     Route: 048
     Dates: start: 20171019
  11. SIMVA HENNIG [Concomitant]
     Indication: AORTIC VALVE STENOSIS
  12. FORADIL [Concomitant]
     Active Substance: FORMOTEROL FUMARATE
     Indication: CHRONIC OBSTRUCTIVE PULMONARY DISEASE
     Route: 055
     Dates: start: 20171019
  13. JANUVIA [Concomitant]
     Active Substance: SITAGLIPTIN PHOSPHATE
     Indication: DIABETES MELLITUS
     Route: 048
     Dates: start: 20171122
  14. RAMIPRIL BETA COMP [Concomitant]
     Indication: DIASTOLIC HYPERTENSION
     Route: 048
  15. ASA RATIOPHARM [Concomitant]
     Indication: PROPHYLAXIS
  16. BRILIQUE [Concomitant]
     Active Substance: TICAGRELOR
     Indication: TACHYCARDIA
     Route: 048
     Dates: start: 20171019
  17. SPIRIVA [Concomitant]
     Active Substance: TIOTROPIUM BROMIDE MONOHYDRATE
     Indication: CHRONIC OBSTRUCTIVE PULMONARY DISEASE
     Route: 055
     Dates: start: 20170320
  18. ATROVENT [Concomitant]
     Active Substance: IPRATROPIUM BROMIDE
     Indication: CHRONIC OBSTRUCTIVE PULMONARY DISEASE
     Route: 055
  19. DEXAMETHASONE. [Suspect]
     Active Substance: DEXAMETHASONE
     Indication: PLASMA CELL MYELOMA
     Route: 065
  20. REVLIMID [Suspect]
     Active Substance: LENALIDOMIDE
     Indication: PLASMA CELL MYELOMA
     Route: 048
  21. ACC [Concomitant]
     Active Substance: ACETYLCYSTEINE
     Indication: PROPHYLAXIS
     Route: 048
     Dates: start: 20171019

REACTIONS (3)
  - Tachyarrhythmia [Recovered/Resolved]
  - Diarrhoea [Recovered/Resolved]
  - Abdominal pain upper [Recovered/Resolved]

NARRATIVE: CASE EVENT DATE: 20170930
